FAERS Safety Report 15366664 (Version 1)
Quarter: 2018Q3

REPORT INFORMATION
  Report Type: Spontaneous
  Country: US (occurrence: US)
  Receive Date: 20180901
  Receipt Date: 20180901
  Transmission Date: 20181010
  Serious: Yes (Other)
  Sender: FDA-Public Use
  Company Number: None

PATIENT
  Age: 67 Year
  Sex: Male
  Weight: 90 kg

DRUGS (1)
  1. ASPERCREME HEAT [Suspect]
     Active Substance: MENTHOL
     Dates: start: 20180831, end: 20180901

REACTIONS (1)
  - Application site pain [None]

NARRATIVE: CASE EVENT DATE: 20180901
